FAERS Safety Report 6725322-0 (Version None)
Quarter: 2010Q2

REPORT INFORMATION
  Report Type: 
  Country: None (occurrence: None)
  Receive Date: 20100514
  Receipt Date: 20100510
  Transmission Date: 20101027
  Serious: Yes (Hospitalization)
  Sender: FDA-Public Use
  Company Number: TN-BRISTOL-MYERS SQUIBB COMPANY-15098437

PATIENT
  Age: 25 Year
  Sex: Male

DRUGS (1)
  1. EFAVIRENZ [Suspect]
     Indication: HIV INFECTION
     Dates: start: 20041201

REACTIONS (1)
  - SCHIZOPHRENIFORM DISORDER [None]
